FAERS Safety Report 7222428-7 (Version None)
Quarter: 2011Q1

REPORT INFORMATION
  Report Type: 
  Country: None (occurrence: None)
  Receive Date: 20110112
  Receipt Date: 20110106
  Transmission Date: 20110831
  Serious: Yes (Hospitalization, Other)
  Sender: FDA-Public Use
  Company Number: BR-MEDIMMUNE-MEDI-0011629

PATIENT
  Sex: Female
  Weight: 7.8 kg

DRUGS (3)
  1. SODIUM CHLORIDE [Concomitant]
     Route: 045
  2. SYNAGIS [Suspect]
     Route: 030
     Dates: start: 20101007, end: 20101007
  3. SYNAGIS [Suspect]

REACTIONS (10)
  - SEPSIS [None]
  - PNEUMONIA [None]
  - PYREXIA [None]
  - WHEEZING [None]
  - BRONCHIOLITIS [None]
  - ASTHENIA [None]
  - OXYGEN SATURATION DECREASED [None]
  - FATIGUE [None]
  - ANAEMIA [None]
  - COUGH [None]
